FAERS Safety Report 16892512 (Version 1)
Quarter: 2019Q4

REPORT INFORMATION
  Report Type: Report from Study
  Country: CA (occurrence: CA)
  Receive Date: 20191007
  Receipt Date: 20191007
  Transmission Date: 20200122
  Serious: Yes (Other)
  Sender: FDA-Public Use
  Company Number: CA-JNJFOC-20190938365

PATIENT
  Age: 42 Year
  Sex: Male
  Weight: 125.8 kg

DRUGS (1)
  1. STELARA [Suspect]
     Active Substance: USTEKINUMAB
     Indication: PSORIASIS
     Route: 058
     Dates: start: 201604

REACTIONS (4)
  - Arthritis infective [Unknown]
  - Incision site pain [Unknown]
  - Infective tenosynovitis [Unknown]
  - Cyst [Unknown]

NARRATIVE: CASE EVENT DATE: 20190923
